FAERS Safety Report 4861065-6 (Version None)
Quarter: 2005Q4

REPORT INFORMATION
  Report Type: 
  Country: None (occurrence: None)
  Receive Date: 20051220
  Receipt Date: 20051113
  Transmission Date: 20060501
  Serious: Yes (Disabling)
  Sender: FDA-Public Use
  Company Number: 425682

PATIENT
  Age: 54 Year
  Sex: Male
  Weight: 86.4 kg

DRUGS (5)
  1. COREG [Suspect]
     Indication: HYPERTENSION
     Dosage: 12.5MG PER DAY
     Route: 065
  2. BENICAR HCT [Concomitant]
  3. ASPIRIN [Concomitant]
     Dosage: 81MG PER DAY
  4. PREVACID [Concomitant]
     Dosage: 15MG PER DAY
  5. ZOCOR [Concomitant]
     Dosage: 40MG PER DAY

REACTIONS (1)
  - DRUG INTOLERANCE [None]
